FAERS Safety Report 5075088-8 (Version None)
Quarter: 2006Q3

REPORT INFORMATION
  Report Type: 
  Country: None (occurrence: None)
  Receive Date: 20060803
  Receipt Date: 20060803
  Transmission Date: 20061208
  Serious: Yes (Life-Threatening, Hospitalization)
  Sender: FDA-Public Use
  Company Number: None

PATIENT
  Age: 58 Year
  Sex: Female
  Weight: 71 kg

DRUGS (15)
  1. METFORMIN [Suspect]
     Indication: DIABETES MELLITUS NON-INSULIN-DEPENDENT
     Dosage: 1 GRAM   BID  PO   (DURATION: PROBABLY ABOUT 2 YEARS)
     Route: 048
  2. ADVAIR DISKUS 100/50 [Concomitant]
  3. PLAVIX [Concomitant]
  4. FELODIPINE [Concomitant]
  5. BUSPIRONE HCL [Concomitant]
  6. ALBUTEROL [Concomitant]
  7. DIOVAN [Concomitant]
  8. FEXOFENADINE [Concomitant]
  9. DIALYVITE [Concomitant]
  10. AMARYL [Concomitant]
  11. BIDIL [Concomitant]
  12. LIPITOR [Concomitant]
  13. COREG [Concomitant]
  14. TRAZODONE HCL [Concomitant]
  15. SINGULAIR [Concomitant]

REACTIONS (8)
  - BLOOD CREATININE INCREASED [None]
  - BODY TEMPERATURE DECREASED [None]
  - CARDIO-RESPIRATORY ARREST [None]
  - HYPERTENSION [None]
  - HYPOTENSION [None]
  - LACTIC ACIDOSIS [None]
  - LEUKOCYTOSIS [None]
  - MENTAL STATUS CHANGES [None]
